FAERS Safety Report 7319713-7 (Version None)
Quarter: 2011Q1

REPORT INFORMATION
  Report Type: 
  Country: None (occurrence: None)
  Receive Date: 20110228
  Receipt Date: 20100818
  Transmission Date: 20110831
  Serious: No
  Sender: FDA-Public Use
  Company Number: A0876527A

PATIENT
  Age: 20 Year
  Sex: Female

DRUGS (2)
  1. NO CONCURRENT MEDICATION [Concomitant]
  2. LAMOTRIGINE [Suspect]
     Dosage: 150MG PER DAY
     Route: 048
     Dates: start: 20100501

REACTIONS (1)
  - RASH PRURITIC [None]
